FAERS Safety Report 10142494 (Version 1)
Quarter: 2014Q2

REPORT INFORMATION
  Report Type: Report from Study
  Country: NL (occurrence: NL)
  Receive Date: 20140430
  Receipt Date: 20140430
  Transmission Date: 20141212
  Serious: Yes (Hospitalization)
  Sender: FDA-Public Use
  Company Number: NL-ROCHE-1388945

PATIENT
  Age: 54 Year
  Sex: Male
  Weight: 61 kg

DRUGS (11)
  1. BEVACIZUMAB [Suspect]
     Indication: GASTRIC CANCER
     Dosage: START DATE OF LAST TREATMENT 07/OCT/2013
     Route: 042
     Dates: start: 20131007
  2. BEVACIZUMAB [Suspect]
     Dosage: START DATE OF LAST TREATMENT 28/OCT/2013
     Route: 042
     Dates: start: 20131007
  3. CAPECITABINE [Suspect]
     Indication: GASTRIC CANCER
     Dosage: BID, DAY 1-14?START DATE OF LAST TREATMENT 07/OCT/2013
     Route: 048
     Dates: start: 20131007
  4. CAPECITABINE [Suspect]
     Dosage: BID DAY 1-14?START DATE OF LAST TREATMENT 04/NOV/2013
     Route: 048
     Dates: start: 20131007
  5. TRASTUZUMAB [Suspect]
     Indication: GASTRIC CANCER
     Dosage: START DATE OF LAST TREATMENT 07/OCT/2013
     Route: 042
     Dates: start: 20131007
  6. TRASTUZUMAB [Suspect]
     Dosage: DATE OF LAST TREATMENT: 28/OCT/2013
     Route: 042
     Dates: start: 20131028
  7. DOCETAXEL [Suspect]
     Indication: GASTRIC CANCER
     Dosage: START DATE OF LAST TREATMENT 07/OCT/2013
     Route: 042
     Dates: start: 20131007
  8. DOCETAXEL [Suspect]
     Route: 042
     Dates: start: 20131007
  9. OXALIPLATIN [Suspect]
     Indication: GASTRIC CANCER
     Dosage: START DATE OF LAST TREATMENT 07/OCT/2013
     Route: 042
     Dates: start: 20131007
  10. OXALIPLATIN [Suspect]
     Dosage: START DATE OF LAST TREATMENT 04/NOV/2013
     Route: 042
     Dates: start: 20131007
  11. FENTANYL [Concomitant]
     Indication: PRODUCT USED FOR UNKNOWN INDICATION
     Dosage: 1 X 4.2 MG, 3 DAYS
     Route: 065
     Dates: start: 20131014

REACTIONS (3)
  - Abdominal pain [Recovered/Resolved]
  - Mucosal inflammation [Recovered/Resolved]
  - Diarrhoea [Recovered/Resolved]
